FAERS Safety Report 7761418-2 (Version None)
Quarter: 2011Q3

REPORT INFORMATION
  Report Type: 
  Country: None (occurrence: None)
  Receive Date: 20110915
  Receipt Date: 20110831
  Transmission Date: 20111222
  Serious: Yes (Disabling, Other)
  Sender: FDA-Public Use
  Company Number: 2011AP001915

PATIENT
  Age: 45 Year
  Sex: Male

DRUGS (1)
  1. ALENDRONATE SODIUM [Suspect]
     Indication: OSTEOPOROSIS

REACTIONS (3)
  - JOINT DISLOCATION [None]
  - ACETABULUM FRACTURE [None]
  - STRESS FRACTURE [None]
